FAERS Safety Report 11306444 (Version 3)
Quarter: 2015Q4

REPORT INFORMATION
  Report Type: Report from Study
  Country: FR (occurrence: FR)
  Receive Date: 20150723
  Receipt Date: 20151120
  Transmission Date: 20160304
  Serious: Yes (Hospitalization, Other)
  Sender: FDA-Public Use
  Company Number: FR-BRISTOL-MYERS SQUIBB COMPANY-BMS-2015-046819

PATIENT
  Age: 69 Year
  Sex: Male
  Weight: 79 kg

DRUGS (2)
  1. NIVOLUMAB [Suspect]
     Active Substance: NIVOLUMAB
     Indication: MALIGNANT MELANOMA
     Dosage: 240 MG, UNK
     Route: 065
     Dates: start: 20150612, end: 20150730
  2. NIVOLUMAB [Suspect]
     Active Substance: NIVOLUMAB
     Dosage: 230 MG, UNK
     Route: 065
     Dates: start: 20150626

REACTIONS (6)
  - Bicytopenia [Unknown]
  - Haemolytic anaemia [Unknown]
  - Jaundice [Unknown]
  - Transfusion [Unknown]
  - Pancytopenia [Not Recovered/Not Resolved]
  - Malignant neoplasm progression [Unknown]

NARRATIVE: CASE EVENT DATE: 20150703
